FAERS Safety Report 21774401 (Version 2)
Quarter: 2025Q2

REPORT INFORMATION
  Report Type: Spontaneous
  Country: ES (occurrence: ES)
  Receive Date: 20221224
  Receipt Date: 20250507
  Transmission Date: 20250717
  Serious: Yes (Hospitalization, Other)
  Sender: STRIDES
  Company Number: ES-STRIDES ARCOLAB LIMITED-2022SP017240

PATIENT
  Age: 92 Year
  Sex: Female

DRUGS (9)
  1. GABAPENTIN [Suspect]
     Active Substance: GABAPENTIN
     Indication: Agitation
     Route: 065
  2. GABAPENTIN [Suspect]
     Active Substance: GABAPENTIN
     Route: 065
  3. ZOLPIDEM [Suspect]
     Active Substance: ZOLPIDEM TARTRATE
     Indication: Agitation
     Route: 065
  4. ZOLPIDEM [Suspect]
     Active Substance: ZOLPIDEM TARTRATE
     Route: 065
  5. TRAZODONE [Suspect]
     Active Substance: TRAZODONE HYDROCHLORIDE
     Indication: Agitation
     Route: 065
  6. TRAZODONE [Suspect]
     Active Substance: TRAZODONE HYDROCHLORIDE
     Route: 065
  7. QUETIAPINE [Suspect]
     Active Substance: QUETIAPINE
     Indication: Agitation
     Route: 065
  8. QUETIAPINE [Suspect]
     Active Substance: QUETIAPINE
     Route: 065
  9. QUETIAPINE [Suspect]
     Active Substance: QUETIAPINE
     Route: 065

REACTIONS (6)
  - Delirium [Recovering/Resolving]
  - Gait apraxia [Recovering/Resolving]
  - Overdose [Unknown]
  - Therapeutic product effect incomplete [Unknown]
  - Therapy partial responder [Unknown]
  - Off label use [Unknown]
